FAERS Safety Report 5403428-6 (Version None)
Quarter: 2007Q3

REPORT INFORMATION
  Report Type: 
  Country: None (occurrence: None)
  Receive Date: 20070713
  Receipt Date: 20070220
  Transmission Date: 20080115
  Serious: Yes (Hospitalization, Other)
  Sender: FDA-Public Use
  Company Number: US-JNJFOC-20061103179

PATIENT
  Age: 33 Year
  Sex: Female

DRUGS (4)
  1. ORTHO EVRA [Suspect]
     Indication: CONTRACEPTION
     Dates: start: 20050601
  2. ALBUTEROL [Concomitant]
  3. MULTIVITAMIN [Concomitant]
  4. LEVOXYL [Concomitant]

REACTIONS (1)
  - PULMONARY EMBOLISM [None]
